FAERS Safety Report 13830582 (Version 1)
Quarter: 2017Q3

REPORT INFORMATION
  Report Type: Spontaneous
  Country: US (occurrence: US)
  Receive Date: 20170803
  Receipt Date: 20170803
  Transmission Date: 20171127
  Serious: No
  Sender: FDA-Public Use
  Company Number: US-SA-2017SA091678

PATIENT
  Sex: Male

DRUGS (19)
  1. ALIROCUMAB PREFILLED PEN [Concomitant]
     Active Substance: ALIROCUMAB
     Dates: start: 20160728
  2. CYCLOBENZAPRINE. [Concomitant]
     Active Substance: CYCLOBENZAPRINE
  3. ONDASETRON [Concomitant]
     Active Substance: ONDANSETRON
  4. TRADJENTA [Concomitant]
     Active Substance: LINAGLIPTIN
  5. CARVEDILOL. [Concomitant]
     Active Substance: CARVEDILOL
  6. FENOFIBRATE. [Concomitant]
     Active Substance: FENOFIBRATE
  7. GLIMEPIRIDE. [Concomitant]
     Active Substance: GLIMEPIRIDE
  8. DIPHENHYDRAMINE. [Concomitant]
     Active Substance: DIPHENHYDRAMINE
  9. LINZESS [Concomitant]
     Active Substance: LINACLOTIDE
  10. OMEPRAZOLE. [Concomitant]
     Active Substance: OMEPRAZOLE
  11. BRILINTA [Concomitant]
     Active Substance: TICAGRELOR
  12. TRAMADOL HYDROCHLORIDE. [Concomitant]
     Active Substance: TRAMADOL HYDROCHLORIDE
  13. VENLAFAXINE [Concomitant]
     Active Substance: VENLAFAXINE HYDROCHLORIDE
  14. PRALUENT [Suspect]
     Active Substance: ALIROCUMAB
     Indication: HYPERCHOLESTEROLAEMIA
     Route: 058
     Dates: start: 20160728
  15. CLONAZEPAM. [Concomitant]
     Active Substance: CLONAZEPAM
  16. ATORVASTATIN [Concomitant]
     Active Substance: ATORVASTATIN
  17. ATROP [Concomitant]
  18. HYDROXYZINE HYDROCHLORIDE. [Concomitant]
     Active Substance: HYDROXYZINE HYDROCHLORIDE
  19. OXYCODONE [Concomitant]
     Active Substance: OXYCODONE
     Dosage: 7.5 -325

REACTIONS (1)
  - Constipation [Not Recovered/Not Resolved]
